FAERS Safety Report 5360710-9 (Version None)
Quarter: 2007Q2

REPORT INFORMATION
  Report Type: 
  Country: None (occurrence: None)
  Receive Date: 20070530
  Receipt Date: 20070209
  Transmission Date: 20071010
  Serious: No
  Sender: FDA-Public Use
  Company Number: 2007PV029835

PATIENT
  Age: 70 Year
  Sex: Male
  Weight: 96.1626 kg

DRUGS (6)
  1. BYETTA [Suspect]
     Indication: DIABETES MELLITUS NON-INSULIN-DEPENDENT
     Dosage: 10 MCG;BID;SC  5 MCG;BID;SC   5 MCG;BID;SC   10 MCG;BID;SC
     Route: 058
     Dates: start: 20070108, end: 20070208
  2. BYETTA [Suspect]
     Indication: DIABETES MELLITUS NON-INSULIN-DEPENDENT
     Dosage: 10 MCG;BID;SC  5 MCG;BID;SC   5 MCG;BID;SC   10 MCG;BID;SC
     Route: 058
     Dates: start: 20061201, end: 20070326
  3. BYETTA [Suspect]
     Indication: DIABETES MELLITUS NON-INSULIN-DEPENDENT
     Dosage: 10 MCG;BID;SC  5 MCG;BID;SC   5 MCG;BID;SC   10 MCG;BID;SC
     Route: 058
     Dates: start: 20070209
  4. BYETTA [Suspect]
     Indication: DIABETES MELLITUS NON-INSULIN-DEPENDENT
     Dosage: 10 MCG;BID;SC  5 MCG;BID;SC   5 MCG;BID;SC   10 MCG;BID;SC
     Route: 058
     Dates: start: 20070327
  5. LANTUS [Concomitant]
  6. GLYBURIDE [Concomitant]

REACTIONS (5)
  - BLOOD GLUCOSE INCREASED [None]
  - DECREASED APPETITE [None]
  - DIZZINESS [None]
  - INJECTION SITE PAIN [None]
  - WEIGHT DECREASED [None]
